FAERS Safety Report 24874567 (Version 1)
Quarter: 2025Q1

REPORT INFORMATION
  Report Type: Spontaneous
  Country: FR (occurrence: FR)
  Receive Date: 20250122
  Receipt Date: 20250122
  Transmission Date: 20250408
  Serious: Yes (Life-Threatening)
  Sender: FRESENIUS KABI
  Company Number: None

PATIENT
  Age: 50 Year
  Sex: Female

DRUGS (9)
  1. ROPIVACAINE [Suspect]
     Active Substance: ROPIVACAINE
     Indication: General anaesthesia
     Route: 042
     Dates: start: 20240910, end: 20240910
  2. DIPRIVAN [Suspect]
     Active Substance: PROPOFOL
     Indication: General anaesthesia
     Route: 042
     Dates: start: 20240910, end: 20240910
  3. PATENT BLUE V [Suspect]
     Active Substance: PATENT BLUE V
     Indication: Lymphatic mapping
     Route: 042
     Dates: start: 20240910, end: 20240910
  4. SUFENTANIL [Suspect]
     Active Substance: SUFENTANIL
     Indication: General anaesthesia
     Route: 042
     Dates: start: 20240910, end: 20240910
  5. CEFAZOLIN SODIUM [Suspect]
     Active Substance: CEFAZOLIN SODIUM
     Indication: General anaesthesia
     Route: 042
     Dates: start: 20240910, end: 20240910
  6. XYLOCAINE [Suspect]
     Active Substance: LIDOCAINE HYDROCHLORIDE
     Indication: General anaesthesia
     Route: 042
     Dates: start: 20240910, end: 20240910
  7. ESKETAMINE [Suspect]
     Active Substance: ESKETAMINE
     Indication: General anaesthesia
     Route: 042
     Dates: start: 20240910, end: 20240910
  8. SEVOFLURANE [Suspect]
     Active Substance: SEVOFLURANE
     Indication: General anaesthesia
     Route: 055
     Dates: start: 20240910, end: 20240910
  9. DROPERIDOL [Suspect]
     Active Substance: DROPERIDOL
     Indication: General anaesthesia
     Route: 042
     Dates: start: 20240910, end: 20240910

REACTIONS (1)
  - Anaphylactic shock [Recovered/Resolved]

NARRATIVE: CASE EVENT DATE: 20240910
